FAERS Safety Report 20519869 (Version 3)
Quarter: 2022Q1

REPORT INFORMATION
  Report Type: Spontaneous
  Country: CH (occurrence: CH)
  Receive Date: 20220225
  Receipt Date: 20220330
  Transmission Date: 20220423
  Serious: Yes (Other)
  Sender: FDA-Public Use
  Company Number: CH-009507513-2202CHE007578

PATIENT
  Age: 57 Year
  Sex: Female

DRUGS (1)
  1. TEMODAL [Suspect]
     Active Substance: TEMOZOLOMIDE
     Indication: Glioblastoma
     Dosage: 150 MILLIGRAM/SQ. METER
     Route: 048
     Dates: start: 20201021, end: 20210219

REACTIONS (2)
  - Malignant neoplasm progression [Unknown]
  - General physical health deterioration [Unknown]
